FAERS Safety Report 7037414-X (Version None)
Quarter: 2010Q4

REPORT INFORMATION
  Report Type: 
  Country: None (occurrence: None)
  Receive Date: 20101011
  Receipt Date: 20100930
  Transmission Date: 20110411
  Serious: Yes (Other)
  Sender: FDA-Public Use
  Company Number: US-MYLANLABS-2010S1017968

PATIENT
  Age: 58 Year
  Sex: Female

DRUGS (5)
  1. CLONAZEPAM [Suspect]
     Indication: INSOMNIA
     Route: 048
     Dates: start: 20070101, end: 20100501
  2. CLONAZEPAM [Suspect]
     Route: 048
  3. CLONAZEPAM [Suspect]
     Route: 048
     Dates: end: 20100701
  4. CHOLESTEROL MEDICATION [Concomitant]
     Indication: BLOOD CHOLESTEROL INCREASED
  5. ANTIHYPERTENSIVES [Concomitant]
     Indication: BLOOD PRESSURE INCREASED

REACTIONS (7)
  - ALOPECIA [None]
  - ANXIETY [None]
  - DRUG DEPENDENCE [None]
  - DRUG INEFFECTIVE FOR UNAPPROVED INDICATION [None]
  - INSOMNIA [None]
  - IRRITABILITY [None]
  - RESTLESSNESS [None]
